FAERS Safety Report 8519203-X (Version None)
Quarter: 2012Q3

REPORT INFORMATION
  Report Type: 
  Country: None (occurrence: None)
  Receive Date: 20120718
  Receipt Date: 20120716
  Transmission Date: 20120928
  Serious: Yes (Death, Hospitalization)
  Sender: FDA-Public Use
  Company Number: GB-ELI_LILLY_AND_COMPANY-GB201109000932

PATIENT
  Age: 62 Year
  Sex: Male
  Weight: 59 kg

DRUGS (5)
  1. HEPARIN SODIUM INJ [Concomitant]
     Indication: STENT PLACEMENT
  2. BIVALIRUDIN [Concomitant]
     Dosage: UNK
     Route: 042
     Dates: start: 20110830, end: 20110830
  3. ALBUTEROL SULATE [Concomitant]
     Dosage: UNK
     Route: 055
  4. BECLOMETHASONE DIPROPIONATE [Concomitant]
     Route: 055
  5. PRASUGREL HYDROCHLORIDE [Suspect]
     Indication: STENT PLACEMENT
     Dosage: 60 MG, LOADING DOSE
     Route: 048
     Dates: start: 20110830, end: 20110830

REACTIONS (3)
  - HAEMORRHAGE INTRACRANIAL [None]
  - ACUTE MYOCARDIAL INFARCTION [None]
  - BRAIN DEATH [None]
